FAERS Safety Report 18538582 (Version 2)
Quarter: 2020Q4

REPORT INFORMATION
  Report Type: Spontaneous
  Country: JP (occurrence: JP)
  Receive Date: 20201124
  Receipt Date: 20201218
  Transmission Date: 20210114
  Serious: Yes (Hospitalization)
  Sender: FDA-Public Use
  Company Number: JP-GLAXOSMITHKLINE-JP2020228067

PATIENT
  Age: 88 Year
  Sex: Female

DRUGS (1)
  1. REQUIP [Suspect]
     Active Substance: ROPINIROLE HYDROCHLORIDE
     Dosage: 4 MG, BID
     Route: 050

REACTIONS (3)
  - Hospitalisation [Unknown]
  - Product use issue [Unknown]
  - Inappropriate schedule of product administration [Unknown]
